FAERS Safety Report 9376960 (Version 2)
Quarter: 2013Q3

REPORT INFORMATION
  Report Type: Report from Study
  Country: CA (occurrence: CA)
  Receive Date: 20130701
  Receipt Date: 20130708
  Transmission Date: 20140515
  Serious: Yes (Death, Hospitalization)
  Sender: FDA-Public Use
  Company Number: PHHY2013CA067397

PATIENT
  Age: 58 Year
  Sex: Male

DRUGS (3)
  1. CLOZARIL [Suspect]
     Indication: SCHIZOPHRENIA
     Dosage: 450 MG,
     Route: 048
     Dates: start: 20010516, end: 20130610
  2. GABAPENTINE [Concomitant]
     Dosage: 600
  3. CLOZEPAM [Concomitant]
     Dosage: 450

REACTIONS (3)
  - Death [Fatal]
  - Loss of consciousness [Unknown]
  - Cardiac arrest [Unknown]
